FAERS Safety Report 14742339 (Version 1)
Quarter: 2018Q2

REPORT INFORMATION
  Report Type: Spontaneous
  Country: FR (occurrence: FR)
  Receive Date: 20180410
  Receipt Date: 20180410
  Transmission Date: 20180711
  Serious: Yes (Hospitalization)
  Sender: FDA-Public Use
  Company Number: FR-009507513-1804FRA002465

PATIENT
  Age: 59 Year
  Sex: Female

DRUGS (2)
  1. MAXALT [Suspect]
     Active Substance: RIZATRIPTAN BENZOATE
     Indication: MIGRAINE
     Route: 048
     Dates: end: 201803
  2. SPIFEN [Suspect]
     Active Substance: IBUPROFEN
     Indication: MIGRAINE
     Dosage: NON PR?CIS?E
     Route: 048
     Dates: end: 201803

REACTIONS (3)
  - Peripheral ischaemia [Recovering/Resolving]
  - Thrombocytopenia [Recovering/Resolving]
  - Neutropenia [Recovering/Resolving]

NARRATIVE: CASE EVENT DATE: 2017
